FAERS Safety Report 12416806 (Version 1)
Quarter: 2016Q2

REPORT INFORMATION
  Report Type: Spontaneous
  Country: US (occurrence: FR)
  Receive Date: 20160530
  Receipt Date: 20160530
  Transmission Date: 20160815
  Serious: Yes (Hospitalization)
  Sender: FDA-Public Use
  Company Number: US-009507513-1605FRA013677

PATIENT
  Age: 82 Year
  Sex: Male

DRUGS (11)
  1. NOVOMIX [Concomitant]
     Active Substance: INSULIN ASPART
  2. LEVOTHYROX [Concomitant]
     Active Substance: LEVOTHYROXINE
  3. HUMALOG MIX50/50 [Concomitant]
     Active Substance: INSULIN LISPRO
     Dosage: 100 IU/ML
  4. HUMAJECT I [Concomitant]
  5. DIGOXINE NATIVELLE [Concomitant]
     Active Substance: DIGOXIN
  6. ATORVASTATIN [Concomitant]
     Active Substance: ATORVASTATIN
  7. CANDESARTAN CILEXETIL. [Concomitant]
     Active Substance: CANDESARTAN CILEXETIL
  8. KEYTRUDA [Suspect]
     Active Substance: PEMBROLIZUMAB
     Indication: METASTATIC MALIGNANT MELANOMA
     Dosage: 142 MG, CYCLICAL (2MG/KG EVERY 3 WEEKS)
     Route: 042
     Dates: start: 20160106, end: 20160224
  9. AMIODARONE [Concomitant]
     Active Substance: AMIODARONE
  10. HUMALOG NPL [Concomitant]
     Dosage: 10 IU/ML
  11. COUMADIN [Concomitant]
     Active Substance: WARFARIN SODIUM

REACTIONS (1)
  - Aplasia pure red cell [Not Recovered/Not Resolved]

NARRATIVE: CASE EVENT DATE: 20160213
